FAERS Safety Report 7177891-7 (Version None)
Quarter: 2010Q4

REPORT INFORMATION
  Report Type: 
  Country: None (occurrence: None)
  Receive Date: 20101220
  Receipt Date: 20101209
  Transmission Date: 20110411
  Serious: Yes (Hospitalization)
  Sender: FDA-Public Use
  Company Number: CA-JNJFOC-20101204693

PATIENT
  Sex: Male
  Weight: 81 kg

DRUGS (2)
  1. REMICADE [Suspect]
     Indication: COLITIS ULCERATIVE
     Dosage: DOSE CHANGED - 1 DOSE Q2WEEK THEN Q4WEEK
     Route: 042
  2. LANSOPRAZOLE [Concomitant]

REACTIONS (6)
  - DRUG INEFFECTIVE [None]
  - HAEMATOCHEZIA [None]
  - INFECTION [None]
  - PAIN [None]
  - PYREXIA [None]
  - ULCER [None]
